FAERS Safety Report 15761459 (Version 1)
Quarter: 2018Q4

REPORT INFORMATION
  Report Type: Spontaneous
  Country: IN (occurrence: IN)
  Receive Date: 20181226
  Receipt Date: 20181226
  Transmission Date: 20190205
  Serious: Yes (Life-Threatening, Hospitalization)
  Sender: FDA-Public Use
  Company Number: IN-MYLANLABS-2018M1093905

PATIENT
  Age: 30 Year
  Sex: Male

DRUGS (1)
  1. ALPRAZOLAM. [Suspect]
     Active Substance: ALPRAZOLAM
     Indication: PRODUCT USED FOR UNKNOWN INDICATION
     Route: 065

REACTIONS (8)
  - Overdose [Recovered/Resolved]
  - Atrial fibrillation [Recovered/Resolved]
  - Left ventricular dysfunction [Recovered/Resolved]
  - Mitral valve incompetence [Recovered/Resolved]
  - Pulmonary oedema [Recovered/Resolved]
  - Hypotension [Recovered/Resolved]
  - Acute coronary syndrome [Recovered/Resolved]
  - Papillary muscle disorder [Recovered/Resolved]
